FAERS Safety Report 10177266 (Version 7)
Quarter: 2015Q1

REPORT INFORMATION
  Report Type: Spontaneous
  Country: US (occurrence: US)
  Receive Date: 20140516
  Receipt Date: 20150327
  Transmission Date: 20150720
  Serious: Yes (Hospitalization, Other)
  Sender: FDA-Public Use
  Company Number: US-GLAXOSMITHKLINE-A1073405A

PATIENT
  Age: 83 Year
  Sex: Female

DRUGS (3)
  1. PROMACTA [Suspect]
     Active Substance: ELTROMBOPAG OLAMINE
     Indication: IMMUNE THROMBOCYTOPENIC PURPURA
     Dosage: 25 MG, QD
     Route: 048
     Dates: start: 2012
  2. PROMACTA [Suspect]
     Active Substance: ELTROMBOPAG OLAMINE
     Indication: CHRONIC OBSTRUCTIVE PULMONARY DISEASE
     Dosage: 25 MG, U
     Route: 065
     Dates: start: 2013
  3. PROMACTA [Suspect]
     Active Substance: ELTROMBOPAG OLAMINE
     Indication: LEUKAEMIA
     Dosage: 50 MG, U
     Dates: start: 20140508

REACTIONS (9)
  - Hip fracture [Recovering/Resolving]
  - Influenza [Unknown]
  - Lung disorder [Unknown]
  - Adverse event [Unknown]
  - Hospitalisation [Unknown]
  - Femur fracture [Unknown]
  - Pneumonia [Unknown]
  - Rehabilitation therapy [Recovering/Resolving]
  - Fall [Recovering/Resolving]

NARRATIVE: CASE EVENT DATE: 20141120
